FAERS Safety Report 6971776-4 (Version None)
Quarter: 2010Q3

REPORT INFORMATION
  Report Type: 
  Country: None (occurrence: None)
  Receive Date: 20100903
  Receipt Date: 20100831
  Transmission Date: 20110219
  Serious: Yes (Other)
  Sender: FDA-Public Use
  Company Number: 2010SP046523

PATIENT
  Age: 29 Year
  Sex: Female

DRUGS (10)
  1. MIRTAZAPINE [Suspect]
     Indication: PRODUCT USED FOR UNKNOWN INDICATION
     Dosage: 2 DF; QD; PO, ; PO
     Route: 048
     Dates: start: 20100723, end: 20100813
  2. MIRTAZAPINE [Suspect]
     Indication: PRODUCT USED FOR UNKNOWN INDICATION
     Dosage: 2 DF; QD; PO, ; PO
     Route: 048
     Dates: start: 20100817
  3. EFFEXOR [Suspect]
     Indication: PRODUCT USED FOR UNKNOWN INDICATION
     Dosage: 300 MG; QD; PO, 225 MG; QD; PO, ; PO
     Route: 048
     Dates: end: 20100721
  4. EFFEXOR [Suspect]
     Indication: PRODUCT USED FOR UNKNOWN INDICATION
     Dosage: 300 MG; QD; PO, 225 MG; QD; PO, ; PO
     Route: 048
     Dates: start: 20100723, end: 20100813
  5. EFFEXOR [Suspect]
     Indication: PRODUCT USED FOR UNKNOWN INDICATION
     Dosage: 300 MG; QD; PO, 225 MG; QD; PO, ; PO
     Route: 048
     Dates: start: 20100817
  6. ATARAX [Suspect]
     Indication: PRODUCT USED FOR UNKNOWN INDICATION
     Dosage: 300 MG; QD; PO
     Route: 048
     Dates: start: 20100723, end: 20100813
  7. SERTRALINE HYDROCHLORIDE [Concomitant]
  8. LEXOMIL [Concomitant]
  9. IMOVANE [Concomitant]
  10. VALIUM [Concomitant]

REACTIONS (8)
  - ALCOHOL USE [None]
  - AUTOMATISM [None]
  - DYSARTHRIA [None]
  - HYPOXIA [None]
  - INTENTIONAL DRUG MISUSE [None]
  - LUNG DISORDER [None]
  - SPEECH DISORDER [None]
  - SUICIDE ATTEMPT [None]
